FAERS Safety Report 8804036 (Version 1)
Quarter: 2012Q4

REPORT INFORMATION
  Report Type: 
  Country: US (occurrence: US)
  Receive Date: 20120924
  Receipt Date: 20120924
  Transmission Date: 20130627
  Serious: No
  Sender: FDA-Public Use
  Company Number: US-PFIZER INC-2012233647

PATIENT
  Sex: Female

DRUGS (4)
  1. AZITHROMYCIN [Suspect]
     Indication: SINUSITIS
     Dosage: two tablets on first day followed by one tablet daily, UNK
     Route: 048
     Dates: start: 2010, end: 2010
  2. AZITHROMYCIN [Suspect]
     Indication: OROPHARYNGEAL PAIN
  3. SYNTHROID [Concomitant]
     Indication: HYPOTHYROIDISM
     Dosage: 50 ug, 1x/day
  4. BENICAR [Concomitant]
     Indication: HYPERTENSION
     Dosage: 20 mg, 1x/day

REACTIONS (2)
  - Vertigo [Recovering/Resolving]
  - Vomiting [Recovered/Resolved]
